FAERS Safety Report 9397263 (Version 2)
Quarter: 2013Q3

REPORT INFORMATION
  Report Type: Spontaneous
  Country: BR (occurrence: BR)
  Receive Date: 20130712
  Receipt Date: 20130805
  Transmission Date: 20140515
  Serious: No
  Sender: FDA-Public Use
  Company Number: BR-009507513-1307BRA006043

PATIENT
  Sex: Female
  Weight: 68 kg

DRUGS (1)
  1. GRACIAL [Suspect]
     Indication: CONTRACEPTION
     Dosage: UNK
     Route: 048
     Dates: end: 201305

REACTIONS (3)
  - Migraine [Unknown]
  - Dizziness [Unknown]
  - Vomiting [Unknown]
